FAERS Safety Report 18934829 (Version 4)
Quarter: 2021Q2

REPORT INFORMATION
  Report Type: Report from Study
  Country: US (occurrence: US)
  Receive Date: 20210224
  Receipt Date: 20210412
  Transmission Date: 20210717
  Serious: Yes (Other)
  Sender: FDA-Public Use
  Company Number: US-GLAXOSMITHKLINE-US2021AMR037918

PATIENT
  Sex: Female

DRUGS (2)
  1. NIRAPARIB [Suspect]
     Active Substance: NIRAPARIB
     Indication: OVARIAN CANCER
     Dosage: 300 MG, QD
     Dates: start: 20210215
  2. NIRAPARIB [Suspect]
     Active Substance: NIRAPARIB
     Dosage: 200 MG, QD
     Dates: start: 202102

REACTIONS (11)
  - Fatigue [Not Recovered/Not Resolved]
  - Dizziness [Not Recovered/Not Resolved]
  - Drug monitoring procedure not performed [Unknown]
  - Nausea [Not Recovered/Not Resolved]
  - Constipation [Recovering/Resolving]
  - Insomnia [Not Recovered/Not Resolved]
  - Syncope [Unknown]
  - Headache [Not Recovered/Not Resolved]
  - Decreased appetite [Recovering/Resolving]
  - Drug intolerance [Unknown]
  - Intentional underdose [Unknown]
